FAERS Safety Report 4266060-6 (Version None)
Quarter: 2004Q1

REPORT INFORMATION
  Report Type: 
  Country: None (occurrence: None)
  Receive Date: 20040107
  Receipt Date: 20040107
  Transmission Date: 20041129
  Serious: Yes (Hospitalization)
  Sender: FDA-Public Use
  Company Number: None

PATIENT
  Sex: Male
  Weight: 58 kg

DRUGS (8)
  1. FLUOROURACIL [Suspect]
     Indication: NEOPLASM MALIGNANT
     Dosage: 1840 MG 24 HRS CONT. IV
     Route: 042
     Dates: start: 20030804, end: 20030808
  2. CISPLATIN [Suspect]
     Indication: NEOPLASM MALIGNANT
     Dosage: 37 MG 24 HRS. CONT. IV
     Route: 042
     Dates: start: 20030804, end: 20030808
  3. FLUOROURACIL [Suspect]
     Indication: NEOPLASM MALIGNANT
     Dosage: 1800 MG 24 HRS. CONT IV
     Route: 042
     Dates: start: 20030825, end: 20030829
  4. CISPLATIN [Suspect]
     Indication: NEOPLASM MALIGNANT
     Dosage: 36 MG 24 HRS. CONT IV
     Route: 042
     Dates: start: 20030825, end: 20030829
  5. IRESSA [Suspect]
     Indication: NEOPLASM MALIGNANT
     Dosage: 250 MG QD PO
     Route: 048
     Dates: start: 20030804
  6. ACIPHEX [Suspect]
     Indication: GASTROOESOPHAGEAL REFLUX DISEASE
     Dosage: 20 MG QD PO
     Route: 048
  7. REGLAN [Suspect]
     Indication: NEOPLASM MALIGNANT
     Dosage: 10 MG QID PO
     Route: 048
  8. ATIVAN [Suspect]
     Indication: ANXIETY
     Dosage: 1 MG TID PRN PO
     Route: 048

REACTIONS (2)
  - CARDIOVASCULAR DISORDER [None]
  - CHEST PAIN [None]
